FAERS Safety Report 10022009 (Version 2)
Quarter: 2014Q2

REPORT INFORMATION
  Report Type: Report from Study
  Country: GB (occurrence: GB)
  Receive Date: 20140319
  Receipt Date: 20140512
  Transmission Date: 20141212
  Serious: Yes (Other)
  Sender: FDA-Public Use
  Company Number: GB-CELGENEUS-167-20785-14030527

PATIENT
  Age: 46 Year
  Sex: Female

DRUGS (5)
  1. THALIDOMIDE [Suspect]
     Indication: PLASMA CELL MYELOMA
     Dosage: 100 MILLIGRAM
     Route: 048
     Dates: start: 20130906, end: 20130926
  2. CYCLOPHOSPHAMIDE [Suspect]
     Indication: PLASMA CELL MYELOMA
     Dosage: 500 MILLIGRAM
     Route: 065
     Dates: start: 20130906, end: 20130920
  3. DEXAMETHASONE [Suspect]
     Indication: PLASMA CELL MYELOMA
     Dosage: 40 MILLIGRAM
     Route: 065
     Dates: start: 20130906, end: 20130920
  4. DEXAMETHASONE [Suspect]
     Route: 065
     Dates: start: 20130927, end: 20130927
  5. LORAZEPAM [Concomitant]
     Indication: INSOMNIA
     Route: 065

REACTIONS (1)
  - Follicular thyroid cancer [Unknown]
